FAERS Safety Report 20758918 (Version 1)
Quarter: 2022Q2

REPORT INFORMATION
  Report Type: Spontaneous
  Country: US (occurrence: US)
  Receive Date: 20220427
  Receipt Date: 20220427
  Transmission Date: 20220720
  Serious: No
  Sender: FDA-Public Use
  Company Number: US-PFIZER INC-202101440354

PATIENT
  Age: 59 Year
  Weight: 81.65 kg

DRUGS (1)
  1. CHANTIX [Suspect]
     Active Substance: VARENICLINE TARTRATE
     Indication: Smoking cessation therapy
     Dosage: 1 MG, 1X/DAY

REACTIONS (5)
  - Recalled product administered [Unknown]
  - Dizziness [Unknown]
  - Feeling abnormal [Unknown]
  - Rash [Unknown]
  - Off label use [Unknown]
